FAERS Safety Report 11168247 (Version 2)
Quarter: 2015Q3

REPORT INFORMATION
  Report Type: Spontaneous
  Country: IT (occurrence: IT)
  Receive Date: 20150605
  Receipt Date: 20150803
  Transmission Date: 20151125
  Serious: Yes (Hospitalization, Other)
  Sender: FDA-Public Use
  Company Number: IT-BRISTOL-MYERS SQUIBB COMPANY-BMS-2015-035400

PATIENT
  Age: 90 Year
  Sex: Female

DRUGS (1)
  1. COUMADIN [Suspect]
     Active Substance: WARFARIN SODIUM
     Indication: PRODUCT USED FOR UNKNOWN INDICATION
     Dosage: 1 UNIT, PRN
     Route: 048
     Dates: start: 20150101, end: 20150525

REACTIONS (4)
  - Cerebral haematoma [Unknown]
  - Aphasia [Unknown]
  - Hemiplegia [Unknown]
  - Fall [Unknown]

NARRATIVE: CASE EVENT DATE: 20150523
